FAERS Safety Report 7217941-2 (Version None)
Quarter: 2011Q1

REPORT INFORMATION
  Report Type: 
  Country: None (occurrence: None)
  Receive Date: 20110110
  Receipt Date: 20101229
  Transmission Date: 20110831
  Serious: Yes (Hospitalization)
  Sender: FDA-Public Use
  Company Number: A0845054F

PATIENT
  Sex: Male
  Weight: 63 kg

DRUGS (3)
  1. CISPLATIN [Suspect]
     Dosage: 100MGM2 CYCLIC
     Route: 042
     Dates: start: 20091103
  2. LAPATINIB [Suspect]
     Route: 048
     Dates: start: 20091029
  3. RADIOTHERAPY [Concomitant]
     Dosage: 10GY VARIABLE DOSE
     Route: 061
     Dates: start: 20091102

REACTIONS (1)
  - FEEDING DISORDER [None]
